FAERS Safety Report 5157548-4 (Version None)
Quarter: 2006Q4

REPORT INFORMATION
  Report Type: 
  Country: None (occurrence: None)
  Receive Date: 20061127
  Receipt Date: 20061114
  Transmission Date: 20070319
  Serious: Yes (Other)
  Sender: FDA-Public Use
  Company Number: FR-GLAXOSMITHKLINE-B0447693A

PATIENT
  Age: 86 Year
  Sex: Female

DRUGS (3)
  1. DEROXAT [Suspect]
     Indication: DEPRESSION
     Dosage: 40MG PER DAY
     Route: 048
     Dates: start: 20060101
  2. MODOPAR [Concomitant]
     Indication: PARKINSON'S DISEASE
  3. COMTAN [Concomitant]
     Indication: PARKINSON'S DISEASE

REACTIONS (4)
  - HYPOKALAEMIA [None]
  - HYPONATRAEMIA [None]
  - OEDEMA PERIPHERAL [None]
  - PSYCHOMOTOR RETARDATION [None]
